FAERS Safety Report 9238675 (Version 1)
Quarter: 2013Q2

REPORT INFORMATION
  Report Type: Spontaneous
  Country: US (occurrence: None)
  Receive Date: 20130417
  Receipt Date: 20130417
  Transmission Date: 20140414
  Serious: Yes (Other)
  Sender: FDA-Public Use
  Company Number: None

PATIENT
  Age: 47 Year
  Sex: Female

DRUGS (13)
  1. STIVARGA [Suspect]
     Indication: RECTAL CANCER
     Dosage: 160 MG QD PO
     Route: 048
     Dates: start: 20121115, end: 20130316
  2. GABAPENTIN [Concomitant]
  3. MORPHINE SULF [Concomitant]
  4. METHADONE [Concomitant]
  5. DIPHENOXYLATE/ATROPINE [Concomitant]
  6. PAROXETINE [Concomitant]
  7. IBUPROFEN [Concomitant]
  8. Q DRYL, DEXA NYST H20 [Concomitant]
  9. STIVARGA [Concomitant]
  10. NITROFURANTOIN MACRO [Concomitant]
  11. GABAPENTIN [Concomitant]
  12. HYDROMORPHONE [Concomitant]
  13. OMEPRAZOLE [Concomitant]

REACTIONS (1)
  - Drug ineffective [None]
